FAERS Safety Report 26207711 (Version 1)
Quarter: 2025Q4

REPORT INFORMATION
  Report Type: Other
  Country: GB (occurrence: GB)
  Receive Date: 20251229
  Receipt Date: 20251229
  Transmission Date: 20260118
  Serious: Yes (Other)
  Sender: MACLEODS
  Company Number: None

PATIENT

DRUGS (2)
  1. ESOMEPRAZOLE [Suspect]
     Active Substance: ESOMEPRAZOLE
     Indication: Product used for unknown indication
  2. OMEPRAZOLE [Suspect]
     Active Substance: OMEPRAZOLE
     Indication: Product used for unknown indication
     Dosage: 20MG ONCE  DAY

REACTIONS (5)
  - Teeth brittle [Not Recovered/Not Resolved]
  - Medication error [Unknown]
  - Blood calcium decreased [Unknown]
  - Tooth fracture [Unknown]
  - Mineral deficiency [Unknown]

NARRATIVE: CASE EVENT DATE: 20250601
